FAERS Safety Report 5270573-8 (Version None)
Quarter: 2007Q1

REPORT INFORMATION
  Report Type: 
  Country: None (occurrence: None)
  Receive Date: 20070315
  Receipt Date: 20070308
  Transmission Date: 20070707
  Serious: Yes (Other)
  Sender: FDA-Public Use
  Company Number: 237951

PATIENT
  Age: 10 Year
  Sex: Female
  Weight: 32.8 kg

DRUGS (1)
  1. NUTROPIN [Suspect]
     Indication: TURNER'S SYNDROME
     Dosage: 2.1 MG, 7/WEEK, UNK
     Dates: start: 20040825

REACTIONS (5)
  - ARTHRALGIA [None]
  - FALL [None]
  - TORUS FRACTURE [None]
  - TRAUMATIC FRACTURE [None]
  - WRIST FRACTURE [None]
